FAERS Safety Report 8065946-4 (Version None)
Quarter: 2012Q1

REPORT INFORMATION
  Report Type: 
  Country: None (occurrence: None)
  Receive Date: 20120124
  Receipt Date: 20120122
  Transmission Date: 20120608
  Serious: Yes (Other)
  Sender: FDA-Public Use
  Company Number: US-BAYER-2012-006909

PATIENT
  Age: 40 Year
  Sex: Male

DRUGS (1)
  1. BETASERON [Suspect]
     Indication: RELAPSING-REMITTING MULTIPLE SCLEROSIS
     Dosage: 0.25 MG, UNK

REACTIONS (4)
  - MULTIPLE SCLEROSIS [None]
  - HYPERHIDROSIS [None]
  - MUSCLE SPASMS [None]
  - TREMOR [None]
